FAERS Safety Report 7966657 (Version 5)
Quarter: 2014Q1

REPORT INFORMATION
  Report Type: Spontaneous
  Country: US (occurrence: US)
  Receive Date: 20110531
  Receipt Date: 20140321
  Transmission Date: 20141002
  Serious: Yes (Hospitalization, Other)
  Sender: FDA-Public Use
  Company Number: US-BAYER-2011-043275

PATIENT
  Age: 24 Year
  Sex: Female
  Weight: 96.15 kg

DRUGS (1)
  1. MIRENA [Suspect]
     Indication: CONTRACEPTION
     Dosage: 20 MCG/24HR, CONT
     Route: 015
     Dates: start: 20100607, end: 20110512

REACTIONS (12)
  - Ruptured ectopic pregnancy [None]
  - Uterine perforation [None]
  - Pain [None]
  - Ectopic pregnancy with contraceptive device [None]
  - Abdominal pain [None]
  - Menorrhagia [None]
  - Drug ineffective [None]
  - Device expulsion [None]
  - Dyspareunia [None]
  - Injury [None]
  - Pain [None]
  - Emotional distress [None]
